FAERS Safety Report 4466636-7 (Version None)
Quarter: 2004Q4

REPORT INFORMATION
  Report Type: 
  Country: None (occurrence: None)
  Receive Date: 20041001
  Receipt Date: 20041001
  Transmission Date: 20050328
  Serious: Yes (Hospitalization)
  Sender: FDA-Public Use
  Company Number: None

PATIENT
  Age: 41 Year
  Sex: Female
  Weight: 70.3075 kg

DRUGS (8)
  1. VIOXX [Suspect]
     Indication: SPINAL FUSION ACQUIRED
     Dosage: 1 DAILY
     Dates: start: 20010425, end: 20040929
  2. PLAVIX [Concomitant]
  3. SOMA [Concomitant]
  4. ZANAFLEX [Concomitant]
  5. LIPITOR [Concomitant]
  6. TOPROL-XL [Concomitant]
  7. LEXAPRO [Concomitant]
  8. AVINZA [Concomitant]

REACTIONS (2)
  - CARDIAC DISORDER [None]
  - CORONARY ARTERY DISEASE [None]
